FAERS Safety Report 4662909-3 (Version None)
Quarter: 2005Q2

REPORT INFORMATION
  Report Type: 
  Country: None (occurrence: None)
  Receive Date: 20050502
  Receipt Date: 20050214
  Transmission Date: 20051028
  Serious: No
  Sender: FDA-Public Use
  Company Number: 200511246US

PATIENT
  Age: 33 Year
  Sex: Female

DRUGS (2)
  1. KETEK [Suspect]
     Indication: NASOPHARYNGITIS
     Dosage: 400 X 2 MG PO
     Route: 048
  2. ALBUTEROL [Concomitant]

REACTIONS (5)
  - AMNESIA [None]
  - CONFUSIONAL STATE [None]
  - DEPRESSION [None]
  - EMOTIONAL DISORDER [None]
  - NAUSEA [None]
